FAERS Safety Report 23658056 (Version 1)
Quarter: 2024Q1

REPORT INFORMATION
  Report Type: Spontaneous
  Country: ES (occurrence: ES)
  Receive Date: 20240321
  Receipt Date: 20240321
  Transmission Date: 20240410
  Serious: Yes (Other)
  Sender: FDA-Public Use
  Company Number: ES-AMGEN-ESPSP2024054605

PATIENT
  Age: 47 Year
  Sex: Female

DRUGS (4)
  1. ADALIMUMAB [Suspect]
     Active Substance: ADALIMUMAB\ISOPROPYL ALCOHOL
     Indication: Crohn^s disease
     Dosage: UNK
     Route: 065
  2. ADALIMUMAB [Suspect]
     Active Substance: ADALIMUMAB\ISOPROPYL ALCOHOL
     Dosage: UNK (REQUIRED INTENSIFICATION)
     Route: 065
  3. MESALAMINE [Concomitant]
     Active Substance: MESALAMINE
     Indication: Crohn^s disease
     Dosage: UNK
     Route: 065
  4. MESALAMINE [Concomitant]
     Active Substance: MESALAMINE
     Dosage: UNK (REQUIRED INTENSIFICATION)
     Route: 065

REACTIONS (6)
  - Actinomycosis [Recovered/Resolved]
  - Crohn^s disease [Recovered/Resolved]
  - Bronchiectasis [Recovered/Resolved]
  - Large intestinal stenosis [Recovered/Resolved]
  - Anal abscess [Recovered/Resolved]
  - Drug ineffective [Unknown]
